FAERS Safety Report 6149570-6 (Version None)
Quarter: 2009Q2

REPORT INFORMATION
  Report Type: 
  Country: None (occurrence: None)
  Receive Date: 20090409
  Receipt Date: 20090406
  Transmission Date: 20091009
  Serious: Yes (Death, Other)
  Sender: FDA-Public Use
  Company Number: PHHY2009DE11822

PATIENT
  Sex: Female
  Weight: 66 kg

DRUGS (16)
  1. ZOMETA [Suspect]
     Indication: METASTASES TO BONE
     Dosage: 4 MG, UNK
     Route: 042
     Dates: start: 20080424, end: 20090213
  2. RADIOTHERAPY [Concomitant]
     Dosage: UNK
     Dates: start: 20080603, end: 20080617
  3. DELIX PLUS [Concomitant]
     Dosage: 1 DF, QD
  4. BELOC ZOK [Concomitant]
     Dosage: 0.5 DF, BID
  5. AMLODIPINE [Concomitant]
     Dosage: 5 UNK, QD
  6. HYDROMORPHONE HCL [Concomitant]
     Dosage: 16 UNK, QD
  7. METOCLOPRAMIDE [Concomitant]
     Dosage: 1 DF, TID
  8. REMERGIL [Concomitant]
     Dosage: 30 UNK, QD
  9. NULYTELY [Concomitant]
     Dosage: 1 DF, QD
  10. ALPHAGAN [Concomitant]
     Dosage: UNK
  11. DURAGESIC-100 [Concomitant]
     Dosage: 75 UG/HR, UNK
  12. TAXOL [Concomitant]
     Dosage: UNK
     Dates: start: 20080414, end: 20080513
  13. FASLODEX [Concomitant]
     Dosage: 250 MG, UNK
     Dates: start: 20080603, end: 20080923
  14. NAVELBINE [Concomitant]
     Dosage: 42 MG, UNK
     Dates: start: 20081013
  15. EPOETIN BETA [Concomitant]
     Dosage: 40000 UNK, QW
     Dates: start: 20081114
  16. MORPHINE [Concomitant]
     Dosage: 10 MG, TID

REACTIONS (4)
  - GENERAL PHYSICAL HEALTH DETERIORATION [None]
  - MALIGNANT NEOPLASM PROGRESSION [None]
  - METASTASES TO LIVER [None]
  - METASTASES TO SPINE [None]
